FAERS Safety Report 26096077 (Version 1)
Quarter: 2025Q4

REPORT INFORMATION
  Report Type: Report from Study
  Country: CN (occurrence: CN)
  Receive Date: 20251127
  Receipt Date: 20251127
  Transmission Date: 20260118
  Serious: Yes (Other)
  Sender: VERITY PHARMACEUTICALS INC.
  Company Number: CN-VER-202500050

PATIENT
  Sex: Female

DRUGS (2)
  1. TRIPTORELIN PAMOATE [Suspect]
     Active Substance: TRIPTORELIN PAMOATE
     Indication: Infertility female
     Route: 065
  2. CETROTIDE [Concomitant]
     Active Substance: CETRORELIX ACETATE
     Indication: Product used for unknown indication
     Route: 065

REACTIONS (8)
  - Off label use [Unknown]
  - Ovarian hyperstimulation syndrome [Unknown]
  - Premature labour [Unknown]
  - Gestational diabetes [Unknown]
  - Gestational hypertension [Unknown]
  - Abortion spontaneous [Unknown]
  - Labour complication [Unknown]
  - Inappropriate schedule of product administration [Unknown]
